FAERS Safety Report 18734627 (Version 1)
Quarter: 2021Q1

REPORT INFORMATION
  Report Type: Spontaneous
  Country: US (occurrence: US)
  Receive Date: 20210112
  Receipt Date: 20210112
  Transmission Date: 20210419
  Serious: No
  Sender: FDA-Public Use
  Company Number: None

PATIENT
  Age: 32 Year
  Sex: Female
  Weight: 105.24 kg

DRUGS (2)
  1. VYEPTI [Suspect]
     Active Substance: EPTINEZUMAB-JJMR
     Indication: MIGRAINE
     Dosage: FREQUENCY: EVERY 3 MONTHS
     Route: 041
     Dates: start: 20201217, end: 20201217
  2. VYEPTI [Concomitant]
     Active Substance: EPTINEZUMAB-JJMR
     Dates: start: 20201217

REACTIONS (4)
  - Back pain [None]
  - Arthralgia [None]
  - Depression [None]
  - Nausea [None]

NARRATIVE: CASE EVENT DATE: 20201217
